FAERS Safety Report 21071771 (Version 8)
Quarter: 2025Q1

REPORT INFORMATION
  Report Type: Spontaneous
  Country: US (occurrence: US)
  Receive Date: 20220712
  Receipt Date: 20250220
  Transmission Date: 20250408
  Serious: No
  Sender: PFIZER
  Company Number: US-PFIZER INC-PV202200020867

PATIENT
  Age: 54 Year
  Sex: Female

DRUGS (4)
  1. IBRANCE [Suspect]
     Active Substance: PALBOCICLIB
     Indication: Breast cancer female
     Route: 048
  2. IBRANCE [Suspect]
     Active Substance: PALBOCICLIB
     Route: 048
     Dates: start: 20230517
  3. WARFARIN [Concomitant]
     Active Substance: WARFARIN
  4. LETROZOLE [Concomitant]
     Active Substance: LETROZOLE

REACTIONS (5)
  - Feeling abnormal [Unknown]
  - Therapeutic response unexpected [Unknown]
  - Hair growth abnormal [Unknown]
  - Impaired driving ability [Unknown]
  - Memory impairment [Unknown]
